FAERS Safety Report 12926832 (Version 2)
Quarter: 2016Q4

REPORT INFORMATION
  Report Type: Spontaneous
  Country: US (occurrence: US)
  Receive Date: 20161108
  Receipt Date: 20161114
  Transmission Date: 20170207
  Serious: No
  Sender: FDA-Public Use
  Company Number: US-009507513-1610USA013926

PATIENT
  Age: 24 Year
  Sex: Female
  Weight: 68.03 kg

DRUGS (1)
  1. NEXPLANON [Suspect]
     Active Substance: ETONOGESTREL
     Indication: CONTRACEPTION
     Dosage: 1 IMPLANT EVERY 3 YEARS, LEFT ARM
     Route: 059
     Dates: start: 20160429

REACTIONS (5)
  - Oropharyngeal pain [Unknown]
  - Amenorrhoea [Unknown]
  - Abdominal pain [Unknown]
  - Chest pain [Unknown]
  - Weight increased [Unknown]

NARRATIVE: CASE EVENT DATE: 201606
